FAERS Safety Report 5255929-1 (Version None)
Quarter: 2007Q1

REPORT INFORMATION
  Report Type: 
  Country: None (occurrence: None)
  Receive Date: 20061204
  Receipt Date: 20060828
  Transmission Date: 20070707
  Serious: No
  Sender: FDA-Public Use
  Company Number: 2006-BP-09988BP

PATIENT
  Age: 71 Year
  Sex: Female

DRUGS (6)
  1. SPIRIVA [Suspect]
     Indication: EMPHYSEMA
     Dosage: 18 MCG (18 MCG, 1 IN 1 D), IH
     Route: 055
     Dates: start: 20040101
  2. ADVAIR (SERETIDE) [Concomitant]
  3. LITHIUM CARBONATE [Concomitant]
  4. LIPITOR [Concomitant]
  5. ZOCOR [Concomitant]
  6. RIVOXIL (ALL OTHER THERAPEUTIC PRODUCTS) [Concomitant]

REACTIONS (1)
  - PAROSMIA [None]
